FAERS Safety Report 9502104 (Version 2)
Quarter: 2013Q4

REPORT INFORMATION
  Report Type: Report from Study
  Country: BR (occurrence: BR)
  Receive Date: 20130905
  Receipt Date: 20131129
  Transmission Date: 20140711
  Serious: Yes (Hospitalization, Other)
  Sender: FDA-Public Use
  Company Number: PHHY2013BR096300

PATIENT
  Sex: Male
  Weight: 72 kg

DRUGS (2)
  1. GALVUS MET [Suspect]
     Indication: DIABETES MELLITUS
     Dosage: 2 DF,(500MG MET, 50MG VILDA) QD
     Route: 048
  2. LEVOFLOXACIN [Suspect]

REACTIONS (16)
  - Convulsion [Recovered/Resolved]
  - Agitation [Recovered/Resolved]
  - Confusional state [Recovered/Resolved]
  - Dyspraxia [Recovered/Resolved]
  - Pneumonia [Recovered/Resolved]
  - Pulmonary sepsis [Recovered/Resolved]
  - Blood pressure decreased [Recovered/Resolved]
  - White blood cell count increased [Recovered/Resolved]
  - Pyrexia [Recovered/Resolved]
  - Weight decreased [Recovering/Resolving]
  - Malnutrition [Recovering/Resolving]
  - Asthenia [Not Recovered/Not Resolved]
  - Prostatic specific antigen increased [Unknown]
  - Depression [Recovered/Resolved]
  - Anaemia [Recovered/Resolved]
  - Blood iron decreased [Recovering/Resolving]
